FAERS Safety Report 15651692 (Version 1)
Quarter: 2018Q4

REPORT INFORMATION
  Report Type: Spontaneous
  Country: BY (occurrence: BY)
  Receive Date: 20181123
  Receipt Date: 20181123
  Transmission Date: 20190205
  Serious: Yes (Life-Threatening)
  Sender: FDA-Public Use
  Company Number: BY-TEVA-2018-BY-851079

PATIENT
  Age: 53 Year
  Sex: Male

DRUGS (18)
  1. LOPIREL [Suspect]
     Active Substance: CLOPIDOGREL BISULFATE
     Dosage: 300 MILLIGRAM DAILY;
     Route: 048
     Dates: start: 20171226, end: 20171226
  2. ISOMIK 0.1% [Concomitant]
     Dosage: 600 MICROGRAM DAILY;
     Route: 048
     Dates: start: 20171226
  3. PLAVIKS [Concomitant]
     Dosage: 150 MILLIGRAM DAILY;
     Route: 048
     Dates: start: 20171226, end: 20171226
  4. ASPIKARD [Concomitant]
     Dosage: 75 MILLIGRAM DAILY;
     Route: 048
     Dates: start: 20171226
  5. ATORVASTATIN [Concomitant]
     Active Substance: ATORVASTATIN
     Dosage: 75 MILLIGRAM DAILY;
     Route: 048
     Dates: start: 20171228
  6. ARIKSTRA [Concomitant]
     Dosage: 75 MILLIGRAM DAILY;
     Route: 048
     Dates: start: 20171228
  7. ASPIKARD [Concomitant]
     Dosage: 75 MILLIGRAM DAILY;
     Route: 048
     Dates: start: 20171228
  8. ATORVASTATIN [Concomitant]
     Active Substance: ATORVASTATIN
     Dosage: 40 MILLIGRAM DAILY;
     Route: 048
     Dates: start: 20171226
  9. LOPIREL [Suspect]
     Active Substance: CLOPIDOGREL BISULFATE
     Indication: ANTIPLATELET THERAPY
     Dosage: 150 MILLIGRAM DAILY;
     Route: 048
     Dates: start: 20171226, end: 20171226
  10. ARIKSTRA [Concomitant]
     Dosage: 2.5 MILLIGRAM DAILY;
     Route: 058
     Dates: start: 20171226
  11. RAMILONG [Concomitant]
     Dosage: 5 MILLIGRAM DAILY;
     Route: 048
     Dates: start: 20171226
  12. PANTOPRAZOL [Concomitant]
     Active Substance: PANTOPRAZOLE SODIUM
     Dosage: 40 MILLIGRAM DAILY;
     Route: 048
     Dates: start: 20171226
  13. ISOMIK 0.1% [Concomitant]
     Dosage: 600 MICROGRAM DAILY;
     Route: 042
     Dates: start: 20171226, end: 20171226
  14. PLAVIKS [Concomitant]
     Dosage: 75 MILLIGRAM DAILY;
     Route: 048
     Dates: start: 20171228
  15. METOPROLOL. [Concomitant]
     Active Substance: METOPROLOL
     Dosage: 75 MILLIGRAM DAILY;
     Route: 048
     Dates: start: 20171228
  16. PANTOPRAZOL [Concomitant]
     Active Substance: PANTOPRAZOLE SODIUM
     Dosage: 75 MILLIGRAM DAILY;
     Route: 048
     Dates: start: 20171228
  17. METOPROLOL. [Concomitant]
     Active Substance: METOPROLOL
     Dosage: 50 MILLIGRAM DAILY;
     Dates: start: 20171226
  18. RAMILONG [Concomitant]
     Dosage: 75 MILLIGRAM DAILY;
     Route: 048
     Dates: start: 20171228

REACTIONS (1)
  - Drug ineffective [Recovered/Resolved]

NARRATIVE: CASE EVENT DATE: 20171226
